FAERS Safety Report 7709276-6 (Version None)
Quarter: 2011Q3

REPORT INFORMATION
  Report Type: 
  Country: None (occurrence: None)
  Receive Date: 20110825
  Receipt Date: 20110822
  Transmission Date: 20111222
  Serious: Yes (Other)
  Sender: FDA-Public Use
  Company Number: PHHY2011US09485

PATIENT
  Sex: Female

DRUGS (1)
  1. EXTAVIA [Suspect]
     Indication: MULTIPLE SCLEROSIS
     Dosage: 0.25 MG, QOD
     Route: 058
     Dates: start: 20101202

REACTIONS (6)
  - ASTHENIA [None]
  - FATIGUE [None]
  - COLITIS ISCHAEMIC [None]
  - WEIGHT DECREASED [None]
  - INJECTION SITE REACTION [None]
  - INJECTION SITE ERYTHEMA [None]
